FAERS Safety Report 12423079 (Version 2)
Quarter: 2016Q2

REPORT INFORMATION
  Report Type: Spontaneous
  Country: US (occurrence: US)
  Receive Date: 20160601
  Receipt Date: 20160613
  Transmission Date: 20160815
  Serious: No
  Sender: FDA-Public Use
  Company Number: US-PFIZER INC-2016279918

PATIENT
  Age: 62 Year
  Sex: Female
  Weight: 57.61 kg

DRUGS (3)
  1. VENTOLIN [Concomitant]
     Active Substance: ALBUTEROL SULFATE
     Dosage: INHALER, TWICE A DAY OR AS NEEDED
     Route: 055
  2. IBANDRONATE [Concomitant]
     Active Substance: IBANDRONATE SODIUM
     Indication: BONE DISORDER
     Dosage: 150 MG HALF ONE PILL PER NIGHT
  3. ESTRING [Suspect]
     Active Substance: ESTRADIOL
     Indication: VULVOVAGINAL DRYNESS
     Dosage: 2 MG, ONCE IN THREE MONTHS
     Route: 067
     Dates: start: 201502

REACTIONS (2)
  - Product difficult to remove [Recovered/Resolved]
  - Abdominal pain lower [Recovered/Resolved]
